FAERS Safety Report 12989243 (Version 1)
Quarter: 2016Q4

REPORT INFORMATION
  Report Type: Spontaneous
  Country: US (occurrence: US)
  Receive Date: 20161201
  Receipt Date: 20161201
  Transmission Date: 20170207
  Serious: No
  Sender: FDA-Public Use
  Company Number: US-BRISTOL-MYERS SQUIBB COMPANY-BMS-2016-101323

PATIENT
  Age: 43 Year
  Sex: Male

DRUGS (1)
  1. KENALOG [Suspect]
     Active Substance: TRIAMCINOLONE ACETONIDE
     Indication: CYSTOID MACULAR OEDEMA
     Dosage: 40 MG/ML, UNK
     Route: 050

REACTIONS (2)
  - Intraocular pressure increased [Unknown]
  - Product use issue [Unknown]
